FAERS Safety Report 6127112-9 (Version None)
Quarter: 2009Q1

REPORT INFORMATION
  Report Type: 
  Country: None (occurrence: None)
  Receive Date: 20090318
  Receipt Date: 20090303
  Transmission Date: 20090719
  Serious: Yes (Hospitalization)
  Sender: FDA-Public Use
  Company Number: DSM-2009-00204

PATIENT
  Age: 63 Year
  Sex: Female

DRUGS (2)
  1. OLMESARTAN MEDOXOMIL [Suspect]
     Indication: HYPERTENSION
  2. TAHOR (ATORVASTATIN CALCIUM)(10 MILLIGRAM)(ATORVASTATIN CALCIUM) [Concomitant]

REACTIONS (5)
  - ALANINE AMINOTRANSFERASE INCREASED [None]
  - BLOOD PH DECREASED [None]
  - DEHYDRATION [None]
  - LIPASE INCREASED [None]
  - RENAL FAILURE [None]
